FAERS Safety Report 10092625 (Version 1)
Quarter: 2014Q2

REPORT INFORMATION
  Report Type: Spontaneous
  Country: US (occurrence: US)
  Receive Date: 20140421
  Receipt Date: 20140421
  Transmission Date: 20141212
  Serious: No
  Sender: FDA-Public Use
  Company Number: US-SANOFI-AVENTIS-2013SA059501

PATIENT
  Age: 80 Year
  Sex: Female

DRUGS (1)
  1. ALLEGRA [Suspect]
     Indication: SINUSITIS
     Route: 048

REACTIONS (6)
  - Tinnitus [Recovered/Resolved]
  - Abnormal sensation in eye [Recovered/Resolved]
  - Feeling abnormal [Not Recovered/Not Resolved]
  - Loss of consciousness [Not Recovered/Not Resolved]
  - Dizziness [Not Recovered/Not Resolved]
  - Drug dose omission [Unknown]
